FAERS Safety Report 4471941-4 (Version None)
Quarter: 2004Q4

REPORT INFORMATION
  Report Type: 
  Country: None (occurrence: None)
  Receive Date: 20041007
  Receipt Date: 20041007
  Transmission Date: 20050328
  Serious: Yes (Hospitalization)
  Sender: FDA-Public Use
  Company Number: STA-AE-04-MTX-456

PATIENT
  Age: 80 Year
  Sex: Female

DRUGS (9)
  1. METHOTREXATE [Suspect]
     Indication: RHEUMATOID ARTHRITIS
     Dosage: 5 MG 1X PER 1 WK, ORAL
     Route: 048
     Dates: start: 20000411, end: 20040210
  2. METHOTREXATE [Suspect]
     Dosage: 10 MG 1X PER 1 WK, ORAL
     Route: 048
     Dates: start: 20040210, end: 20040101
  3. RIMATIL (BUCILLAMINE) [Concomitant]
  4. PREDNISONE [Concomitant]
  5. GASTER (FAMOTIDINE) [Concomitant]
  6. ALUMINUM HYDROXIDE W/MAGNESIUM HYDROXIDE (ALUMINUM HYDROXIDE/MAGNESIUM [Concomitant]
  7. TORSEMIDE [Concomitant]
  8. RISEDRONATE SODIUM [Concomitant]
  9. CALCIUM LACTATE (CALCIUM LACTATE) [Concomitant]

REACTIONS (7)
  - BETA HAEMOLYTIC STREPTOCOCCAL INFECTION [None]
  - BLOOD BETA-D-GLUCAN ABNORMAL [None]
  - BLOOD CULTURE POSITIVE [None]
  - DIARRHOEA [None]
  - GRANULOCYTOPENIA [None]
  - PLATELET COUNT DECREASED [None]
  - PYREXIA [None]
